FAERS Safety Report 11246719 (Version 2)
Quarter: 2016Q4

REPORT INFORMATION
  Report Type: Report from Study
  Country: US (occurrence: US)
  Receive Date: 20150708
  Receipt Date: 20161005
  Transmission Date: 20170206
  Serious: Yes (Other)
  Sender: FDA-Public Use
  Company Number: PHEH2015US012460

PATIENT
  Sex: Female
  Weight: 63.39 kg

DRUGS (6)
  1. MAXALT [Concomitant]
     Active Substance: RIZATRIPTAN BENZOATE
     Indication: MIGRAINE
     Dosage: UNK
     Route: 065
  2. MAXALT-MLT [Concomitant]
     Active Substance: RIZATRIPTAN BENZOATE
     Indication: PRODUCT USED FOR UNKNOWN INDICATION
     Dosage: UNK
     Route: 065
  3. ZONEGRAN [Concomitant]
     Active Substance: ZONISAMIDE
     Indication: MIGRAINE
     Dosage: UNK
     Route: 065
  4. GILENYA [Suspect]
     Active Substance: FINGOLIMOD HYDROCHLORIDE
     Indication: MULTIPLE SCLEROSIS
     Dosage: 0.5 MG, QD
     Route: 048
     Dates: start: 20150518
  5. GRALISE [Concomitant]
     Active Substance: GABAPENTIN
     Indication: PRODUCT USED FOR UNKNOWN INDICATION
     Dosage: UNK
     Route: 065
  6. ZOLPIDEM [Concomitant]
     Active Substance: ZOLPIDEM\ZOLPIDEM TARTRATE
     Indication: PRODUCT USED FOR UNKNOWN INDICATION
     Dosage: UNK
     Route: 065

REACTIONS (12)
  - Diplopia [Unknown]
  - Neck pain [Recovering/Resolving]
  - Seizure [Unknown]
  - Loss of consciousness [Unknown]
  - Vision blurred [Unknown]
  - Urinary incontinence [Unknown]
  - Blindness [Unknown]
  - Visual impairment [Unknown]
  - Tremor [Unknown]
  - Visual evoked potentials abnormal [Unknown]
  - Confusional state [Unknown]
  - Fatigue [Unknown]
